FAERS Safety Report 8170503-5 (Version None)
Quarter: 2012Q1

REPORT INFORMATION
  Report Type: 
  Country: None (occurrence: None)
  Receive Date: 20120228
  Receipt Date: 20120217
  Transmission Date: 20120608
  Serious: Yes (Hospitalization)
  Sender: FDA-Public Use
  Company Number: JP-SANOFI-AVENTIS-2012SA005675

PATIENT
  Age: 63 Year
  Sex: Male
  Weight: 54 kg

DRUGS (16)
  1. TS-1 [Concomitant]
     Route: 048
     Dates: start: 20111101
  2. ACETAMINOPHEN [Concomitant]
     Indication: ANTIPYRESIS
     Route: 048
     Dates: start: 20120115
  3. BUDESONIDE/FORMOTEROL [Concomitant]
     Route: 055
  4. OXALIPLATIN [Suspect]
     Route: 041
     Dates: start: 20111011
  5. TS-1 [Concomitant]
     Indication: GASTRIC CANCER
     Route: 048
     Dates: start: 20110405
  6. OXALIPLATIN [Suspect]
     Route: 041
     Dates: start: 20120110
  7. TS-1 [Concomitant]
     Route: 048
     Dates: start: 20120110
  8. SINGULAIR [Concomitant]
     Route: 048
  9. TS-1 [Concomitant]
     Route: 048
     Dates: start: 20111011
  10. TS-1 [Concomitant]
     Route: 048
     Dates: end: 20120114
  11. LYRICA [Concomitant]
     Indication: NEUROPATHY PERIPHERAL
     Route: 048
     Dates: start: 20111011, end: 20120115
  12. SPIRIVA [Concomitant]
     Route: 055
  13. OXALIPLATIN [Suspect]
     Indication: GASTRIC CANCER
     Route: 041
     Dates: start: 20110405
  14. OXALIPLATIN [Suspect]
     Route: 041
     Dates: start: 20111101
  15. ADALAT CC [Concomitant]
     Indication: HYPERTENSION
     Route: 048
     Dates: end: 20120115
  16. AMLODIPINE BESYLATE [Concomitant]
     Route: 048

REACTIONS (1)
  - ASTHMA [None]
